FAERS Safety Report 10790628 (Version 4)
Quarter: 2015Q3

REPORT INFORMATION
  Report Type: Spontaneous
  Country: US (occurrence: US)
  Receive Date: 20150212
  Receipt Date: 20150730
  Transmission Date: 20151125
  Serious: No
  Sender: FDA-Public Use
  Company Number: US-GLAXOSMITHKLINE-US2015GSK004046

PATIENT
  Age: 68 Year
  Sex: Female

DRUGS (24)
  1. VERAMYST [Suspect]
     Active Substance: FLUTICASONE FUROATE
     Indication: UPPER-AIRWAY COUGH SYNDROME
     Dosage: 2 PUFF(S), BID
     Route: 045
     Dates: start: 201411
  2. NASACORT AQ [Concomitant]
     Active Substance: TRIAMCINOLONE ACETONIDE
  3. NORTRIPTYLINE [Concomitant]
     Active Substance: NORTRIPTYLINE
  4. SYNTHROID [Concomitant]
     Active Substance: LEVOTHYROXINE SODIUM
  5. TOPROL XL [Concomitant]
     Active Substance: METOPROLOL SUCCINATE
  6. CETIRIZINE [Concomitant]
     Active Substance: CETIRIZINE HYDROCHLORIDE
  7. FORADIL [Concomitant]
     Active Substance: FORMOTEROL FUMARATE
  8. RESTASIS [Concomitant]
     Active Substance: CYCLOSPORINE
  9. FERREX [Concomitant]
  10. PROLIA [Concomitant]
     Active Substance: DENOSUMAB
  11. ADVAIR DISKUS [Suspect]
     Active Substance: FLUTICASONE PROPIONATE\SALMETEROL XINAFOATE
     Indication: ASTHMA
     Dosage: UNK, U
  12. COZAAR [Concomitant]
     Active Substance: LOSARTAN POTASSIUM
  13. VICTOZA [Concomitant]
     Active Substance: LIRAGLUTIDE
  14. XALATAN [Concomitant]
     Active Substance: LATANOPROST
  15. XOPENEX [Concomitant]
     Active Substance: LEVALBUTEROL HYDROCHLORIDE
  16. GLUCOPHAGE [Concomitant]
     Active Substance: METFORMIN HYDROCHLORIDE
  17. JANUVIA [Concomitant]
     Active Substance: SITAGLIPTIN PHOSPHATE
  18. VERAMYST [Suspect]
     Active Substance: FLUTICASONE FUROATE
     Dosage: UNK
  19. MUCINEX [Concomitant]
     Active Substance: GUAIFENESIN
  20. PLAVIX [Concomitant]
     Active Substance: CLOPIDOGREL BISULFATE
  21. CRESTOR [Concomitant]
     Active Substance: ROSUVASTATIN CALCIUM
  22. FLOVENT [Concomitant]
     Active Substance: FLUTICASONE PROPIONATE
  23. PREVACID [Concomitant]
     Active Substance: LANSOPRAZOLE
  24. TYLENOL ARTHRITIS PAIN [Concomitant]
     Active Substance: ACETAMINOPHEN

REACTIONS (4)
  - Asthma [Recovered/Resolved]
  - Drug ineffective [Recovered/Resolved]
  - Therapeutic response unexpected [Recovered/Resolved]
  - Product quality issue [Unknown]

NARRATIVE: CASE EVENT DATE: 201411
